FAERS Safety Report 9343914 (Version 1)
Quarter: 2013Q2

REPORT INFORMATION
  Report Type: Spontaneous
  Country: US (occurrence: US)
  Receive Date: 20130612
  Receipt Date: 20130612
  Transmission Date: 20140414
  Serious: Yes (Hospitalization)
  Sender: FDA-Public Use
  Company Number: US-BAYER-2013-069596

PATIENT
  Age: 39 Year
  Sex: Female

DRUGS (9)
  1. YASMIN [Suspect]
  2. PROTONIX [Concomitant]
     Indication: GASTROOESOPHAGEAL REFLUX DISEASE
  3. ALLEGRA [Concomitant]
  4. CLARITIN [Concomitant]
  5. ZANTAC [Concomitant]
  6. FLONASE [Concomitant]
  7. FLEXERIL [Concomitant]
  8. TYLENOL [PARACETAMOL] [Concomitant]
  9. DIFLUCAN [Concomitant]

REACTIONS (1)
  - Portal vein thrombosis [Recovered/Resolved]
